FAERS Safety Report 5151442-0 (Version None)
Quarter: 2006Q4

REPORT INFORMATION
  Report Type: 
  Country: None (occurrence: None)
  Receive Date: 20061115
  Receipt Date: 20061101
  Transmission Date: 20070319
  Serious: Yes (Death, Hospitalization, Other)
  Sender: FDA-Public Use
  Company Number: PHBS2006JP17000

PATIENT
  Age: 76 Year
  Sex: Male

DRUGS (5)
  1. PREDNISOLONE [Concomitant]
     Indication: DERMATOMYOSITIS
     Dosage: 40 MG/D
     Route: 048
     Dates: start: 20041101, end: 20041108
  2. PREDNISOLONE SODIUM SUCCINATE INJ [Concomitant]
     Indication: DERMATOMYOSITIS
     Route: 041
     Dates: start: 20041101
  3. METHYLPREDNISOLONE SODIUM SUCCINATE [Suspect]
     Indication: DERMATOMYOSITIS
     Dosage: 1 G/D
     Route: 065
     Dates: start: 20041101, end: 20041101
  4. CYCLOSPORINE [Suspect]
     Indication: DERMATOMYOSITIS
     Dosage: 50 MG/D
     Route: 065
     Dates: start: 20041129, end: 20041201
  5. CYCLOSPORINE [Suspect]
     Dosage: 40 MG/D
     Route: 065
     Dates: start: 20041201, end: 20050101

REACTIONS (24)
  - ADENOVIRAL HAEMORRHAGIC CYSTITIS [None]
  - ASPERGILLOSIS [None]
  - BLOOD LACTATE DEHYDROGENASE INCREASED [None]
  - BRONCHOPULMONARY ASPERGILLOSIS [None]
  - COAGULATION TEST ABNORMAL [None]
  - CYTOMEGALOVIRUS INFECTION [None]
  - HAEMODIALYSIS [None]
  - LIFE SUPPORT [None]
  - METASTASES TO LIVER [None]
  - PLATELET COUNT ABNORMAL [None]
  - PLATELET COUNT DECREASED [None]
  - PNEUMONIA BACTERIAL [None]
  - PNEUMONIA FUNGAL [None]
  - PSYCHIATRIC SYMPTOM [None]
  - PULMONARY HAEMORRHAGE [None]
  - PYREXIA [None]
  - RED BLOOD CELL SCHISTOCYTES PRESENT [None]
  - RENAL FAILURE ACUTE [None]
  - RENAL IMPAIRMENT [None]
  - RENAL TUBULAR NECROSIS [None]
  - SMALL CELL LUNG CANCER STAGE UNSPECIFIED [None]
  - THERAPY NON-RESPONDER [None]
  - THROMBOSIS [None]
  - THROMBOTIC THROMBOCYTOPENIC PURPURA [None]
